FAERS Safety Report 6756731-1 (Version None)
Quarter: 2010Q2

REPORT INFORMATION
  Report Type: 
  Country: None (occurrence: None)
  Receive Date: 20100604
  Receipt Date: 20100527
  Transmission Date: 20101027
  Serious: Yes (Death)
  Sender: FDA-Public Use
  Company Number: BR-BRISTOL-MYERS SQUIBB COMPANY-15131139

PATIENT
  Age: 68 Year
  Sex: Male

DRUGS (1)
  1. APROZIDE [Suspect]
     Dosage: TABS
     Route: 048

REACTIONS (1)
  - MULTI-ORGAN FAILURE [None]
